FAERS Safety Report 18941697 (Version 3)
Quarter: 2021Q1

REPORT INFORMATION
  Report Type: Spontaneous
  Country: CA (occurrence: CA)
  Receive Date: 20210225
  Receipt Date: 20210323
  Transmission Date: 20210420
  Serious: Yes (Other)
  Sender: FDA-Public Use
  Company Number: CA-PFIZER INC-2020400708

PATIENT
  Age: 58 Year
  Sex: Female

DRUGS (4)
  1. ZIRABEV [Suspect]
     Active Substance: BEVACIZUMAB-BVZR
     Dosage: 2000 MG, EVERY 3 WEEKS
     Route: 042
     Dates: start: 20210216, end: 20210216
  2. SODIUM CHLORIDE. [Concomitant]
     Active Substance: SODIUM CHLORIDE
  3. NITROFURANTOIN. [Concomitant]
     Active Substance: NITROFURANTOIN
     Indication: CYSTITIS
     Dosage: 100 MG, 2X/DAY
     Route: 048
  4. ZIRABEV [Suspect]
     Active Substance: BEVACIZUMAB-BVZR
     Indication: ANAPLASTIC ASTROCYTOMA
     Dosage: 2000 MG, EVERY 3 WEEKS
     Route: 042
     Dates: start: 20210125, end: 20210216

REACTIONS (11)
  - Myalgia [Unknown]
  - Fatigue [Unknown]
  - Off label use [Unknown]
  - Product dose omission issue [Unknown]
  - Off label use [Unknown]
  - Intentional product use issue [Unknown]
  - Heart rate increased [Unknown]
  - Oxygen saturation decreased [Unknown]
  - Infusion related reaction [Unknown]
  - Blood pressure increased [Unknown]
  - Body temperature decreased [Unknown]

NARRATIVE: CASE EVENT DATE: 20210125
